FAERS Safety Report 7325658-9 (Version None)
Quarter: 2011Q1

REPORT INFORMATION
  Report Type: 
  Country: None (occurrence: None)
  Receive Date: 20110302
  Receipt Date: 20110216
  Transmission Date: 20110831
  Serious: Yes (Hospitalization, Other)
  Sender: FDA-Public Use
  Company Number: JP-PFIZER INC-2010179563

PATIENT
  Age: 65 Year
  Sex: Female

DRUGS (1)
  1. CELECOX [Suspect]
     Dosage: 200MG/DAY
     Route: 048

REACTIONS (3)
  - VENOUS THROMBOSIS [None]
  - PULMONARY EMBOLISM [None]
  - GASTRIC CANCER [None]
